FAERS Safety Report 20169316 (Version 1)
Quarter: 2021Q4

REPORT INFORMATION
  Report Type: Spontaneous
  Country: GB (occurrence: GB)
  Receive Date: 20211210
  Receipt Date: 20211210
  Transmission Date: 20220303
  Serious: Yes (Hospitalization)
  Sender: FDA-Public Use
  Company Number: None

PATIENT
  Age: 6 Year
  Sex: Male
  Weight: 17 kg

DRUGS (6)
  1. TOPOTECAN HYDROCHLORIDE [Suspect]
     Active Substance: TOPOTECAN HYDROCHLORIDE
     Indication: Product used for unknown indication
     Dosage: 0.75 MG/M2, QD(5 DAYS EVERY 21 DAYS)
     Route: 042
     Dates: start: 20211006
  2. CYCLOPHOSPHAMIDE [Suspect]
     Active Substance: CYCLOPHOSPHAMIDE
     Indication: Product used for unknown indication
     Dosage: 250 MG/M2, QD
     Route: 042
     Dates: start: 20211006, end: 20211010
  3. VENETOCLAX [Suspect]
     Active Substance: VENETOCLAX
     Indication: Refractory cancer
     Dosage: 120 MG, QD
     Route: 048
     Dates: start: 20210901, end: 20210901
  4. COTRIMOXAZOLE [Concomitant]
     Active Substance: SULFAMETHOXAZOLE\TRIMETHOPRIM
     Indication: Prophylaxis
     Dosage: 240 MG, BID
     Route: 048
     Dates: start: 20210901
  5. LEVOMEPROMAZINE [Concomitant]
     Active Substance: LEVOMEPROMAZINE
     Indication: Vomiting
     Dosage: 6 MG ((3 MG,2 IN 1 D)
     Route: 048
     Dates: start: 20210903
  6. ONDANSETRON [Concomitant]
     Active Substance: ONDANSETRON
     Indication: Vomiting
     Dosage: 4 MG, PRN
     Route: 042
     Dates: start: 20210901, end: 20210903

REACTIONS (6)
  - Cytopenia [Unknown]
  - Sepsis [Not Recovered/Not Resolved]
  - Herpes simplex [Unknown]
  - Hypotension [Unknown]
  - Chest pain [Unknown]
  - Oropharyngeal pain [Unknown]

NARRATIVE: CASE EVENT DATE: 20210913
